FAERS Safety Report 20123016 (Version 1)
Quarter: 2021Q4

REPORT INFORMATION
  Report Type: Spontaneous
  Country: JP (occurrence: JP)
  Receive Date: 20211129
  Receipt Date: 20211129
  Transmission Date: 20220303
  Serious: Yes (Other)
  Sender: FDA-Public Use
  Company Number: JP-SA-2021SA391034

PATIENT
  Age: 78 Year
  Sex: Male

DRUGS (1)
  1. TAXOTERE [Suspect]
     Active Substance: DOCETAXEL
     Indication: Prostate cancer recurrent
     Route: 041

REACTIONS (4)
  - Acquired factor V deficiency [Unknown]
  - Bleeding time prolonged [Recovering/Resolving]
  - Melaena [Recovering/Resolving]
  - Haematuria [Recovering/Resolving]
